FAERS Safety Report 23039826 (Version 1)
Quarter: 2023Q4

REPORT INFORMATION
  Report Type: Spontaneous
  Country: US (occurrence: US)
  Receive Date: 20231006
  Receipt Date: 20231006
  Transmission Date: 20240110
  Serious: Yes (Hospitalization)
  Sender: FDA-Public Use
  Company Number: US-FreseniusKabi-FK202315717

PATIENT
  Age: 35 Year
  Sex: Male

DRUGS (3)
  1. HALOPERIDOL DECANOATE [Suspect]
     Active Substance: HALOPERIDOL DECANOATE
     Indication: Psychotic disorder
     Dosage: TEN DAYS AFTER THE INITIAL HALOPERIDOL DECANOATE DOSE, THE PATIENT RECEIVED ONE ADDITIONAL DOSE OF H
     Route: 030
  2. RISPERIDONE [Suspect]
     Active Substance: RISPERIDONE
     Indication: Psychotic disorder
     Dosage: PO DAILY
     Route: 048
  3. VALPROIC ACID [Suspect]
     Active Substance: VALPROIC ACID
     Indication: Psychotic disorder

REACTIONS (3)
  - Catatonia [Recovering/Resolving]
  - Extrapyramidal disorder [Recovering/Resolving]
  - Parkinsonism [Unknown]
